FAERS Safety Report 12720451 (Version 1)
Quarter: 2016Q3

REPORT INFORMATION
  Report Type: Spontaneous
  Country: US (occurrence: US)
  Receive Date: 20160907
  Receipt Date: 20160907
  Transmission Date: 20161109
  Serious: Yes (Hospitalization)
  Sender: FDA-Public Use
  Company Number: US-B.I. PHARMACEUTICALS,INC./RIDGEFIELD-2016-BI-57492BP

PATIENT
  Sex: Male

DRUGS (1)
  1. SPIRIVA [Suspect]
     Active Substance: TIOTROPIUM BROMIDE MONOHYDRATE
     Indication: CHRONIC OBSTRUCTIVE PULMONARY DISEASE
     Dosage: 18 MCG
     Route: 055
     Dates: start: 2004, end: 201501

REACTIONS (5)
  - Chronic obstructive pulmonary disease [Unknown]
  - Stent placement [Recovered/Resolved]
  - Cardiac pacemaker insertion [Unknown]
  - Unevaluable event [Unknown]
  - Eye disorder [Unknown]

NARRATIVE: CASE EVENT DATE: 2004
